APPROVED DRUG PRODUCT: METRONIDAZOLE
Active Ingredient: METRONIDAZOLE
Strength: 250MG
Dosage Form/Route: TABLET;ORAL
Application: A208162 | Product #001 | TE Code: AB
Applicant: NOVITIUM PHARMA LLC
Approved: May 25, 2016 | RLD: No | RS: No | Type: RX